FAERS Safety Report 17492960 (Version 1)
Quarter: 2020Q1

REPORT INFORMATION
  Report Type: Spontaneous
  Country: ES (occurrence: ES)
  Receive Date: 20200303
  Receipt Date: 20200303
  Transmission Date: 20200409
  Serious: Yes (Other)
  Sender: FDA-Public Use
  Company Number: ES-B.I. PHARMACEUTICALS,INC./RIDGEFIELD-2020-12-012446

PATIENT
  Age: 61 Year
  Sex: Female
  Weight: 66 kg

DRUGS (1)
  1. GILOTRIF [Suspect]
     Active Substance: AFATINIB
     Indication: LUNG ADENOCARCINOMA
     Dosage: 20MG FOR 28 DAYS
     Route: 048
     Dates: start: 20190313

REACTIONS (1)
  - T-cell type acute leukaemia [Unknown]

NARRATIVE: CASE EVENT DATE: 20200211
